FAERS Safety Report 12114202 (Version 1)
Quarter: 2016Q1

REPORT INFORMATION
  Report Type: Spontaneous
  Country: US (occurrence: US)
  Receive Date: 20160225
  Receipt Date: 20160225
  Transmission Date: 20160526
  Serious: No
  Sender: FDA-Public Use
  Company Number: US-LANTHEUS-LMI-2015-00013

PATIENT
  Age: 61 Year
  Sex: Male
  Weight: 136 kg

DRUGS (13)
  1. DEFINITY [Suspect]
     Active Substance: PERFLUTREN
     Indication: ECHOCARDIOGRAM
     Dosage: 1.5 ML DEFINITY DILUTED IN 8.5 ML NORMAL SALINE
     Route: 040
     Dates: start: 20150113, end: 20150113
  2. ASPIRIN. [Concomitant]
     Active Substance: ASPIRIN
  3. FUROSEMIDE. [Concomitant]
     Active Substance: FUROSEMIDE
  4. LIPITOR [Concomitant]
     Active Substance: ATORVASTATIN CALCIUM
  5. PLAVIX [Concomitant]
     Active Substance: CLOPIDOGREL BISULFATE
  6. LISINOPRIL. [Concomitant]
     Active Substance: LISINOPRIL
  7. NITROGLYCERIN. [Concomitant]
     Active Substance: NITROGLYCERIN
  8. XARELTO [Concomitant]
     Active Substance: RIVAROXABAN
  9. COREG [Concomitant]
     Active Substance: CARVEDILOL
  10. GLIPIZIDE. [Concomitant]
     Active Substance: GLIPIZIDE
  11. OMEPRAZOLE. [Concomitant]
     Active Substance: OMEPRAZOLE
  12. DEFINITY [Suspect]
     Active Substance: PERFLUTREN
     Indication: ECHOCARDIOGRAM
     Dosage: 1.5 ML DEFINITY DILUTED IN 8.5 ML NORMAL SALINE
     Route: 040
     Dates: start: 20150113, end: 20150113
  13. ARMOUR [Concomitant]

REACTIONS (2)
  - Feeling abnormal [Recovered/Resolved]
  - Chest discomfort [Recovered/Resolved]

NARRATIVE: CASE EVENT DATE: 20150113
